FAERS Safety Report 25084568 (Version 1)
Quarter: 2025Q1

REPORT INFORMATION
  Report Type: Spontaneous
  Country: CH (occurrence: CH)
  Receive Date: 20250317
  Receipt Date: 20250317
  Transmission Date: 20250409
  Serious: Yes (Hospitalization)
  Sender: CHEPLAPHARM
  Company Number: CH-CHEPLA-2025003356

PATIENT
  Age: 81 Year
  Sex: Male

DRUGS (3)
  1. CARBOPLATIN [Suspect]
     Active Substance: CARBOPLATIN
     Indication: Transitional cell carcinoma metastatic
  2. VALGANCICLOVIR [Suspect]
     Active Substance: VALGANCICLOVIR
     Indication: Cytomegalovirus gastrointestinal ulcer
  3. GEMCITABINE [Suspect]
     Active Substance: GEMCITABINE
     Indication: Transitional cell carcinoma metastatic

REACTIONS (7)
  - Haematotoxicity [Unknown]
  - Pancytopenia [Unknown]
  - COVID-19 [Recovered/Resolved]
  - C-reactive protein increased [Unknown]
  - Urinary retention [Unknown]
  - Listeria encephalitis [Recovered/Resolved]
  - Off label use [Unknown]
